FAERS Safety Report 5914398-6 (Version None)
Quarter: 2008Q4

REPORT INFORMATION
  Report Type: 
  Country: None (occurrence: None)
  Receive Date: 20081007
  Receipt Date: 20080922
  Transmission Date: 20090506
  Serious: Yes (Hospitalization, Disabling)
  Sender: FDA-Public Use
  Company Number: 2008S1016160

PATIENT
  Age: 57 Year
  Sex: Female

DRUGS (4)
  1. NITROFURANTOIN MONOHYDRATE/MACROCRYSTALS [Suspect]
     Indication: URINARY TRACT INFECTION
     Dosage: 100 MG; Q12H; ORAL
     Route: 048
     Dates: start: 20080512, end: 20080516
  2. ATENOLOL [Concomitant]
  3. LIPITOR [Concomitant]
  4. PREMARIN [Concomitant]

REACTIONS (6)
  - DEMYELINATING POLYNEUROPATHY [None]
  - GAIT DISTURBANCE [None]
  - HYPOKINESIA [None]
  - MALAISE [None]
  - PAIN IN EXTREMITY [None]
  - SENSORY DISTURBANCE [None]
